FAERS Safety Report 8427092-7 (Version None)
Quarter: 2012Q2

REPORT INFORMATION
  Report Type: 
  Country: None (occurrence: None)
  Receive Date: 20120611
  Receipt Date: 20120530
  Transmission Date: 20120825
  Serious: Yes (Hospitalization, Other)
  Sender: FDA-Public Use
  Company Number: US-JNJFOC-20120308055

PATIENT
  Sex: Male

DRUGS (3)
  1. TOPAMAX [Suspect]
     Indication: MIGRAINE
     Route: 048
     Dates: start: 20110615, end: 20110625
  2. AMITRIPTLINE HYDROCHLORIDE TAB [Concomitant]
     Route: 065
  3. RISPERDAL [Concomitant]
     Route: 048

REACTIONS (2)
  - PERIORBITAL OEDEMA [None]
  - MYDRIASIS [None]
